APPROVED DRUG PRODUCT: ZIDOVUDINE
Active Ingredient: ZIDOVUDINE
Strength: 50MG/5ML
Dosage Form/Route: SOLUTION;ORAL
Application: A077268 | Product #001 | TE Code: AA
Applicant: AUROBINDO PHARMA LTD
Approved: Sep 19, 2005 | RLD: No | RS: No | Type: RX